FAERS Safety Report 20482041 (Version 1)
Quarter: 2022Q1

REPORT INFORMATION
  Report Type: Spontaneous
  Country: ES (occurrence: ES)
  Receive Date: 20220216
  Receipt Date: 20220216
  Transmission Date: 20220424
  Serious: Yes (Other)
  Sender: FDA-Public Use
  Company Number: ES-JAZZ-2021-ES-020618

PATIENT
  Age: 59 Year
  Sex: Female

DRUGS (9)
  1. ZEPZELCA [Suspect]
     Active Substance: LURBINECTEDIN
     Indication: Ovarian cancer
     Dosage: 5.4 MILLIGRAM
     Route: 065
     Dates: start: 20211006, end: 20211006
  2. ZEPZELCA [Suspect]
     Active Substance: LURBINECTEDIN
     Dosage: 5.4 MILLIGRAM
     Dates: start: 20211108
  3. FENTANYL [Concomitant]
     Active Substance: FENTANYL
     Indication: Product used for unknown indication
     Dosage: FREQUENCY: 5.4 MILLIGRAM
     Dates: start: 2019
  4. LOPERAMIDE HYDROCHLORIDE [Concomitant]
     Active Substance: LOPERAMIDE HYDROCHLORIDE
     Indication: Product used for unknown indication
     Dosage: FREQUENCY: 5.4 MILLIGRAM
     Dates: start: 2016
  5. METAMIZOL [Concomitant]
     Active Substance: METAMIZOLE SODIUM
     Indication: Product used for unknown indication
     Dosage: FREQUENCY: 5.4 MILLIGRAM
     Dates: start: 2020
  6. ACETAMINOPHEN [Concomitant]
     Active Substance: ACETAMINOPHEN
     Indication: Product used for unknown indication
     Dosage: FREQUENCY: 5.4 MILLIGRAM
     Dates: start: 2018
  7. PREGABALIN [Concomitant]
     Active Substance: PREGABALIN
     Indication: Product used for unknown indication
     Dosage: FREQUENCY: 5.4 MILLIGRAM
     Dates: start: 2014
  8. ALBUTEROL [Concomitant]
     Active Substance: ALBUTEROL
     Indication: Product used for unknown indication
     Dosage: FREQUENCY: 5.4 MILLIGRAM
     Dates: start: 2012
  9. CYANOCOBALAMIN [Concomitant]
     Active Substance: CYANOCOBALAMIN
     Indication: Product used for unknown indication
     Dosage: UNK
     Dates: start: 2017

REACTIONS (2)
  - Neutropenia [Recovered/Resolved]
  - Respiratory tract infection [Recovered/Resolved]

NARRATIVE: CASE EVENT DATE: 20211027
